FAERS Safety Report 8804434 (Version 2)
Quarter: 2013Q1

REPORT INFORMATION
  Report Type: Spontaneous
  Country: US (occurrence: US)
  Receive Date: 20120924
  Receipt Date: 20130322
  Transmission Date: 20140127
  Serious: Yes (Other)
  Sender: FDA-Public Use
  Company Number: US-BAYER-2012-097667

PATIENT
  Age: 20 Year
  Sex: Female

DRUGS (5)
  1. YAZ [Suspect]
  2. YASMIN [Suspect]
  3. OCELLA [Suspect]
  4. LOPRESSOR [Concomitant]
     Indication: PALPITATIONS
  5. ALBUTEROL INHALER [Concomitant]
     Dosage: UNK UNK, PRN
     Route: 045

REACTIONS (2)
  - Injury [None]
  - Pulmonary embolism [None]
